FAERS Safety Report 4588119-6 (Version None)
Quarter: 2005Q1

REPORT INFORMATION
  Report Type: 
  Country: None (occurrence: None)
  Receive Date: 20050216
  Receipt Date: 20050131
  Transmission Date: 20050727
  Serious: No
  Sender: FDA-Public Use
  Company Number: 2005AP01129

PATIENT
  Age: 64 Year
  Sex: Female

DRUGS (1)
  1. NOLVADEX [Suspect]
     Dosage: 20 MG DAILY PO
     Route: 048
     Dates: start: 20000301

REACTIONS (2)
  - FEMALE GENITAL TRACT TUBERCULOSIS [None]
  - PYOMETRA [None]
